FAERS Safety Report 5067400-0 (Version None)
Quarter: 2006Q3

REPORT INFORMATION
  Report Type: 
  Country: None (occurrence: None)
  Receive Date: 20060727
  Receipt Date: 20060628
  Transmission Date: 20061208
  Serious: Yes (Other)
  Sender: FDA-Public Use
  Company Number: PT-GDP-0613396

PATIENT
  Age: 72 Year
  Sex: Female
  Weight: 60.2 kg

DRUGS (5)
  1. ROZEX [Suspect]
     Indication: ROSACEA
     Dates: start: 20060515, end: 20060518
  2. FUSIDATE SODIUM [Concomitant]
  3. ACARBOSE [Concomitant]
  4. GLICALZIDE [Concomitant]
  5. METFORMONE ^MERCK^ [Concomitant]

REACTIONS (3)
  - BURNING SENSATION [None]
  - ERYTHEMA [None]
  - RASH PAPULAR [None]
